FAERS Safety Report 21328008 (Version 1)
Quarter: 2022Q3

REPORT INFORMATION
  Report Type: Spontaneous
  Country: US (occurrence: None)
  Receive Date: 20220912
  Receipt Date: 20220912
  Transmission Date: 20221026
  Serious: Yes (Life-Threatening, Disabling, Other)
  Sender: FDA-Public Use
  Company Number: None

PATIENT
  Age: 42 Year
  Sex: Male
  Weight: 87.75 kg

DRUGS (2)
  1. XANAX [Suspect]
     Active Substance: ALPRAZOLAM
     Dosage: OTHER QUANTITY : 4 TABLET(S);?FREQUENCY : TWICE A DAY;?
     Route: 048
     Dates: start: 20220909, end: 20220910
  2. CARVEDILOL [Suspect]
     Active Substance: CARVEDILOL

REACTIONS (3)
  - Blood urine present [None]
  - Gastrointestinal haemorrhage [None]
  - Adulterated product [None]

NARRATIVE: CASE EVENT DATE: 20220909
